FAERS Safety Report 5318502-2 (Version None)
Quarter: 2007Q2

REPORT INFORMATION
  Report Type: 
  Country: None (occurrence: None)
  Receive Date: 20070501
  Receipt Date: 20070413
  Transmission Date: 20071010
  Serious: Yes (Death, Hospitalization, Other)
  Sender: FDA-Public Use
  Company Number: DSA_29799_2007

PATIENT
  Sex: Female

DRUGS (14)
  1. TEMESTA (TEMESTA) (NOT SPECIFIED) [Suspect]
     Indication: ANXIETY
     Dosage: 7.5 MG QD ORAL
     Route: 048
     Dates: start: 20070315, end: 20070318
  2. TEMESTA (TEMESTA) (NOT SPECIFIED) [Suspect]
     Indication: SUICIDAL IDEATION
     Dosage: 7.5 MG QD ORAL
     Route: 048
     Dates: start: 20070315, end: 20070318
  3. TEMESTA (TEMESTA) (NOT SPECIFIED) [Suspect]
     Indication: ANXIETY
     Dosage: SEE IMAGE
     Route: 048
     Dates: start: 20070319
  4. TEMESTA (TEMESTA) (NOT SPECIFIED) [Suspect]
     Indication: SUICIDAL IDEATION
     Dosage: SEE IMAGE
     Route: 048
     Dates: start: 20070319
  5. TEMESTA (TEMESTA) (NOT SPECIFIED) [Suspect]
     Indication: ANXIETY
     Dosage: ORAL
     Route: 048
     Dates: start: 20070203, end: 20070314
  6. RISPERDAL [Suspect]
     Dosage: ORAL
     Route: 048
     Dates: start: 20070212, end: 20070313
  7. TOLVON (TOLVON) (NOT SPECIFIED) [Suspect]
     Dosage: 30 MG ORAL
     Route: 048
     Dates: start: 20070315, end: 20070318
  8. TOLVON (TOLVON) (NOT SPECIFIED) [Suspect]
     Dosage: SEE IMAGE
     Route: 048
     Dates: start: 20070302, end: 20070304
  9. TOLVON (TOLVON) (NOT SPECIFIED) [Suspect]
     Dosage: SEE IMAGE
     Route: 048
     Dates: start: 20070305, end: 20070314
  10. ZYPREXA [Suspect]
     Dosage: SEE IMAGE
     Route: 048
     Dates: start: 20070314, end: 20070315
  11. ZYPREXA [Suspect]
     Dosage: SEE IMAGE
     Route: 048
     Dates: start: 20070316, end: 20070318
  12. ZYPREXA [Suspect]
     Dosage: SEE IMAGE
     Route: 048
     Dates: start: 20070319
  13. EMSLEX/01760402/ (EMSELEX) 7.5 MG [Suspect]
     Indication: URINARY INCONTINENCE
     Dosage: 7.5 MG ORAL
     Route: 048
     Dates: start: 20070315, end: 20070319
  14. PANTOZOL [Concomitant]

REACTIONS (17)
  - ACUTE CORONARY SYNDROME [None]
  - AKATHISIA [None]
  - BALANCE DISORDER [None]
  - CARDIAC ARREST [None]
  - CARDIOVASCULAR DISORDER [None]
  - CEREBRAL ISCHAEMIA [None]
  - CEREBROVASCULAR SPASM [None]
  - CHOKING [None]
  - COGWHEEL RIGIDITY [None]
  - FALL [None]
  - FATIGUE [None]
  - FOREIGN BODY ASPIRATION [None]
  - INJURY ASPHYXIATION [None]
  - MYDRIASIS [None]
  - PUPIL FIXED [None]
  - RESPIRATORY ARREST [None]
  - TREMOR [None]
